FAERS Safety Report 4341490-2 (Version None)
Quarter: 2004Q2

REPORT INFORMATION
  Report Type: 
  Country: None (occurrence: None)
  Receive Date: 20040415
  Receipt Date: 20040405
  Transmission Date: 20050107
  Serious: Yes (Other)
  Sender: FDA-Public Use
  Company Number: 055-0981-M0100780

PATIENT
  Age: 60 Year
  Sex: Male

DRUGS (8)
  1. ATORVASTATIN (ATORVASTATIN) [Suspect]
     Indication: DYSLIPIDAEMIA
     Dosage: 40 MG (DAILY), ORAL
     Route: 048
     Dates: start: 19981201
  2. TAMSULOSIN (TAMSULOSIN) [Concomitant]
  3. CARBAMAZEPINE [Concomitant]
  4. QUINAPRIL HCL [Concomitant]
  5. ACETYLSALICYLIC ACID SRT [Concomitant]
  6. GINKGO BILOBA (GINKGO BILOBA) [Concomitant]
  7. HOMEOPATIC PREPARATION (HOMEOPATIC PREPARATION) [Concomitant]
  8. HERBAL PREPARATION (HERBAL PREPARATION) [Concomitant]

REACTIONS (3)
  - BENIGN PROSTATIC HYPERPLASIA [None]
  - BLOOD CHOLESTEROL INCREASED [None]
  - PROSTATIC SPECIFIC ANTIGEN INCREASED [None]
